FAERS Safety Report 4427796-7 (Version None)
Quarter: 2004Q3

REPORT INFORMATION
  Report Type: 
  Country: None (occurrence: None)
  Receive Date: 20040812
  Receipt Date: 20040729
  Transmission Date: 20050211
  Serious: Yes (Hospitalization)
  Sender: FDA-Public Use
  Company Number: 202486

PATIENT
  Age: 51 Year
  Sex: Female
  Weight: 62.1428 kg

DRUGS (3)
  1. AVONEX [Suspect]
     Indication: MULTIPLE SCLEROSIS
     Dosage: 30 MCG QW IM
     Route: 030
     Dates: start: 20040614
  2. NEURONTIN [Concomitant]
  3. SYNTHROID [Concomitant]

REACTIONS (9)
  - ARTHRALGIA [None]
  - DEHYDRATION [None]
  - DEPRESSION [None]
  - DIFFICULTY IN WALKING [None]
  - DYSPNOEA [None]
  - DYSURIA [None]
  - KIDNEY INFECTION [None]
  - PLATELET COUNT INCREASED [None]
  - PROTEIN URINE [None]
